FAERS Safety Report 9882002 (Version 2)
Quarter: 2014Q1

REPORT INFORMATION
  Report Type: Spontaneous
  Country: JP (occurrence: JP)
  Receive Date: 20140207
  Receipt Date: 20140304
  Transmission Date: 20141002
  Serious: Yes (Hospitalization)
  Sender: FDA-Public Use
  Company Number: PHHY2014JP015142

PATIENT
  Age: 84 Year
  Sex: Male

DRUGS (12)
  1. RIVASTIGMIN [Suspect]
     Indication: DEMENTIA ALZHEIMER^S TYPE
     Dosage: 4.5 MG, QD
     Route: 062
     Dates: start: 20130828, end: 20130925
  2. RIVASTIGMIN [Suspect]
     Dosage: 9 MG, QD
     Route: 062
     Dates: start: 20130926, end: 20131022
  3. KALLIDINOGENASE [Concomitant]
     Dosage: UNK UKN, UNK
  4. OSTEN [Concomitant]
     Dosage: UNK UKN, UNK
  5. CERNILTON [Concomitant]
     Dosage: UNK UKN, UNK
  6. HACHIMIGAN [Concomitant]
     Dosage: UNK UKN, UNK
  7. LIVALO [Concomitant]
     Dosage: UNK UKN, UNK
  8. LUPRAC [Concomitant]
     Dosage: UNK UKN, UNK
  9. ALDACTONE A [Concomitant]
     Dosage: UNK UKN, UNK
  10. BIO-THREE [Concomitant]
     Dosage: UNK UKN, UNK
  11. MUCOSTA [Concomitant]
     Dosage: UNK UKN, UNK
  12. ROZEREM [Concomitant]
     Dosage: UNK UKN, UNK

REACTIONS (1)
  - Poriomania [Recovered/Resolved]
